FAERS Safety Report 25471827 (Version 2)
Quarter: 2025Q3

REPORT INFORMATION
  Report Type: Spontaneous
  Country: US (occurrence: US)
  Receive Date: 20250624
  Receipt Date: 20250821
  Transmission Date: 20251021
  Serious: Yes (Hospitalization, Other)
  Sender: NOVO NORDISK
  Company Number: US-NOVOPROD-1462085

PATIENT
  Age: 24 Year
  Sex: Female
  Weight: 114 kg

DRUGS (7)
  1. WEGOVY [Suspect]
     Active Substance: SEMAGLUTIDE
     Indication: Product used for unknown indication
     Dosage: 1 MG, QW
     Route: 058
  2. LEVOFLOXACIN [Concomitant]
     Active Substance: LEVOFLOXACIN
     Indication: Product used for unknown indication
     Dosage: 750 MG, QD
     Route: 048
  3. METFORMIN [Concomitant]
     Active Substance: METFORMIN HYDROCHLORIDE
     Indication: Product used for unknown indication
     Dosage: 500 MG, QD
     Route: 048
  4. ATORVASTATIN [Concomitant]
     Active Substance: ATORVASTATIN
     Indication: Product used for unknown indication
     Dosage: 20 MG, QD
     Route: 048
  5. AMLODIPINE [Concomitant]
     Active Substance: AMLODIPINE BESYLATE
     Indication: Product used for unknown indication
     Dosage: 20 MG, QD
     Route: 048
  6. QULIPTA [Concomitant]
     Active Substance: ATOGEPANT
     Indication: Product used for unknown indication
     Dosage: 30 MG, QD
     Route: 048
  7. CEFTRIAXONE [Concomitant]
     Active Substance: CEFTRIAXONE
     Indication: Product used for unknown indication
     Dosage: 100 ML, QD
     Route: 042

REACTIONS (2)
  - Gastroenteritis salmonella [Not Recovered/Not Resolved]
  - Colitis [Not Recovered/Not Resolved]

NARRATIVE: CASE EVENT DATE: 20250611
